FAERS Safety Report 15319054 (Version 1)
Quarter: 2018Q3

REPORT INFORMATION
  Report Type: Spontaneous
  Country: US (occurrence: US)
  Receive Date: 20180820
  Receipt Date: 20180820
  Transmission Date: 20181010
  Serious: No
  Sender: FDA-Public Use
  Company Number: None

PATIENT
  Age: 58 Year
  Sex: Female
  Weight: 61.23 kg

DRUGS (1)
  1. METHOTREXATE MDV, [Suspect]
     Active Substance: METHOTREXATE
     Indication: RHEUMATOID ARTHRITIS
     Route: 058
     Dates: start: 201611

REACTIONS (2)
  - Intentional product use issue [None]
  - Multiple use of single-use product [None]
